FAERS Safety Report 11399726 (Version 2)
Quarter: 2015Q4

REPORT INFORMATION
  Report Type: Report from Study
  Country: US (occurrence: US)
  Receive Date: 20150820
  Receipt Date: 20151009
  Transmission Date: 20160304
  Serious: Yes (Hospitalization, Other)
  Sender: FDA-Public Use
  Company Number: PHEH2015US016065

PATIENT
  Sex: Male
  Weight: 78.91 kg

DRUGS (1)
  1. GILENYA [Suspect]
     Active Substance: FINGOLIMOD HYDROCHLORIDE
     Indication: MULTIPLE SCLEROSIS
     Dosage: 0.5 MG, QD
     Route: 048
     Dates: start: 20150223

REACTIONS (4)
  - Transient ischaemic attack [Unknown]
  - Migraine [Unknown]
  - Central nervous system lesion [Unknown]
  - Cyst [Unknown]
